FAERS Safety Report 11618122 (Version 1)
Quarter: 2015Q4

REPORT INFORMATION
  Report Type: Spontaneous
  Country: DE (occurrence: DE)
  Receive Date: 20151010
  Receipt Date: 20151010
  Transmission Date: 20160304
  Serious: Yes (Hospitalization)
  Sender: FDA-Public Use
  Company Number: PHHY2015DE119696

PATIENT
  Age: 65 Year
  Sex: Male

DRUGS (1)
  1. GLIVEC [Suspect]
     Active Substance: IMATINIB MESYLATE
     Indication: CHRONIC MYELOID LEUKAEMIA
     Dosage: 400 MG, UNK
     Route: 065
     Dates: start: 2003

REACTIONS (6)
  - Dysgeusia [Unknown]
  - Mouth ulceration [Unknown]
  - Basal cell carcinoma [Unknown]
  - Stomatitis [Unknown]
  - Memory impairment [Unknown]
  - Second primary malignancy [Unknown]
